FAERS Safety Report 7435362-4 (Version None)
Quarter: 2011Q2

REPORT INFORMATION
  Report Type: 
  Country: None (occurrence: None)
  Receive Date: 20110425
  Receipt Date: 20110411
  Transmission Date: 20111010
  Serious: Yes (Other)
  Sender: FDA-Public Use
  Company Number: B0712514A

PATIENT
  Sex: Female
  Weight: 75.9 kg

DRUGS (6)
  1. ROBAXIN [Concomitant]
  2. CITALOPRAM [Concomitant]
  3. NORVASC [Concomitant]
     Dates: start: 20080123
  4. NAPROXEN [Concomitant]
  5. PAROXETINE HCL [Concomitant]
  6. AVANDAMET [Suspect]
     Indication: DIABETES MELLITUS
     Route: 048
     Dates: start: 20081222

REACTIONS (4)
  - HYPERLIPIDAEMIA [None]
  - OEDEMA [None]
  - PULMONARY HYPERTENSION [None]
  - HYPERTENSION [None]
